FAERS Safety Report 8814669 (Version 1)
Quarter: 2012Q4

REPORT INFORMATION
  Report Type: Spontaneous
  Country: US (occurrence: None)
  Receive Date: 20120926
  Receipt Date: 20120926
  Transmission Date: 20130627
  Serious: Yes (Hospitalization)
  Sender: FDA-Public Use
  Company Number: HA12-274-AE

PATIENT
  Sex: Male

DRUGS (1)
  1. SMZ/ TMP [Suspect]
     Indication: PROSTATE INFECTION
     Route: 048
     Dates: start: 201201, end: 201202

REACTIONS (2)
  - Decreased activity [None]
  - Renal failure [None]
